FAERS Safety Report 8912072 (Version 1)
Quarter: 2012Q4

REPORT INFORMATION
  Report Type: 
  Country: CA (occurrence: CA)
  Receive Date: 20121116
  Receipt Date: 20121116
  Transmission Date: 20130627
  Serious: Yes (Other)
  Sender: FDA-Public Use
  Company Number: CA-ASTRAZENECA-2012SE84893

PATIENT
  Age: 65 Year
  Sex: Male
  Weight: 84 kg

DRUGS (14)
  1. MERREM [Suspect]
     Route: 042
  2. ABILIFY [Concomitant]
     Route: 048
  3. CALCIUM [Concomitant]
     Route: 048
  4. CLONAZEPAM [Concomitant]
     Route: 048
  5. CRESTOR [Concomitant]
     Route: 048
  6. HCTZ [Concomitant]
     Route: 048
  7. HYDROMORPHONE [Concomitant]
     Route: 048
  8. LANSOPRAZOLE [Concomitant]
     Route: 048
  9. LORAZEPAM [Concomitant]
     Route: 048
  10. LOVENOX [Concomitant]
     Route: 058
  11. LYRICA [Concomitant]
     Route: 048
  12. MIRTAZAPINE [Concomitant]
     Route: 048
  13. SEROQUEL [Concomitant]
     Route: 048
  14. TYLENOL [Concomitant]
     Route: 048

REACTIONS (3)
  - Generalised erythema [Recovered/Resolved]
  - Hypersensitivity [Recovered/Resolved]
  - Rash [Recovered/Resolved]
